FAERS Safety Report 9948767 (Version 1)
Quarter: 2014Q1

REPORT INFORMATION
  Report Type: Report from Study
  Country: US (occurrence: US)
  Receive Date: 20140304
  Receipt Date: 20140304
  Transmission Date: 20141002
  Serious: Yes (Other)
  Sender: FDA-Public Use
  Company Number: US-ROCHE-1345089

PATIENT
  Age: 45 Year
  Sex: Female

DRUGS (7)
  1. LUCENTIS [Suspect]
     Indication: DIABETIC RETINAL OEDEMA
     Route: 050
  2. AVASTIN [Suspect]
     Indication: DIABETIC RETINOPATHY
     Route: 065
  3. AVASTIN [Suspect]
     Indication: MACULAR OEDEMA
  4. ALBUTEROL [Concomitant]
  5. METFORMIN [Concomitant]
     Route: 065
  6. VIGAMOX [Concomitant]
  7. LEVOTHYROXIN [Concomitant]
     Route: 065

REACTIONS (8)
  - Eyelid margin crusting [Unknown]
  - Vision blurred [Unknown]
  - Visual impairment [Unknown]
  - Lacrimation increased [Unknown]
  - Vision blurred [Unknown]
  - Cataract [Unknown]
  - Dry eye [Unknown]
  - Therapeutic response decreased [Unknown]
